FAERS Safety Report 17288547 (Version 5)
Quarter: 2020Q3

REPORT INFORMATION
  Report Type: Report from Study
  Country: US (occurrence: US)
  Receive Date: 20200120
  Receipt Date: 20200818
  Transmission Date: 20201102
  Serious: Yes (Life-Threatening, Hospitalization, Other)
  Sender: FDA-Public Use
  Company Number: US-PFIZER INC-2017125430

PATIENT
  Age: 14 Year
  Sex: Female
  Weight: 67 kg

DRUGS (4)
  1. SERTRALINE HCL [Suspect]
     Active Substance: SERTRALINE HYDROCHLORIDE
     Indication: DEPRESSION
     Dosage: 37.5 MG 1.5 TABLET OF 25 MG, DAILY
     Route: 048
     Dates: start: 20161112, end: 20161129
  2. SERTRALINE HCL [Suspect]
     Active Substance: SERTRALINE HYDROCHLORIDE
     Dosage: 50 MG, DAILY
     Dates: start: 20161130, end: 20161130
  3. SERTRALINE HCL [Suspect]
     Active Substance: SERTRALINE HYDROCHLORIDE
     Indication: ANXIETY
     Dosage: 25 MG 1 TABLET, 1X/DAY
     Route: 048
     Dates: start: 20160926, end: 20161111
  4. SERTRALINE HCL [Suspect]
     Active Substance: SERTRALINE HYDROCHLORIDE
     Dosage: 75 MG, DAILY
     Dates: start: 20161201, end: 20161212

REACTIONS (6)
  - Drug ineffective [Recovered/Resolved]
  - Intentional overdose [Recovered/Resolved]
  - Suicide attempt [Recovered/Resolved]
  - Suicidal ideation [Recovered/Resolved]
  - Intentional self-injury [Recovered/Resolved]
  - Depression [Recovering/Resolving]

NARRATIVE: CASE EVENT DATE: 20161121
